FAERS Safety Report 13099254 (Version 3)
Quarter: 2017Q3

REPORT INFORMATION
  Report Type: Report from Study
  Country: US (occurrence: US)
  Receive Date: 20170109
  Receipt Date: 20170712
  Transmission Date: 20171127
  Serious: Yes (Hospitalization, Other)
  Sender: FDA-Public Use
  Company Number: US-ACTELION-A-US2017-147932

PATIENT
  Age: 74 Year
  Sex: Female
  Weight: 113.38 kg

DRUGS (2)
  1. OPSUMIT [Suspect]
     Active Substance: MACITENTAN
     Indication: PULMONARY ARTERIAL HYPERTENSION
     Dosage: 10 MG, QD
     Route: 048
     Dates: start: 20160304
  2. ORENITRAM [Concomitant]
     Active Substance: TREPROSTINIL

REACTIONS (6)
  - Dyspnoea exertional [Unknown]
  - Headache [Unknown]
  - Gallbladder pain [Unknown]
  - Kidney infection [Unknown]
  - Hallucination, visual [Unknown]
  - Muscle spasms [Unknown]
